FAERS Safety Report 11137853 (Version 2)
Quarter: 2016Q2

REPORT INFORMATION
  Report Type: Spontaneous
  Country: US (occurrence: US)
  Receive Date: 20150526
  Receipt Date: 20160516
  Transmission Date: 20160815
  Serious: No
  Sender: FDA-Public Use
  Company Number: US-MALLINCKRODT-T201501086

PATIENT
  Age: 62 Year
  Sex: Male
  Weight: 77 kg

DRUGS (10)
  1. GABAPENTIN. [Concomitant]
     Active Substance: GABAPENTIN
     Dosage: 400 MG TID
  2. H.P. ACTHAR [Suspect]
     Active Substance: CORTICOTROPIN
     Indication: MUSCULAR WEAKNESS
  3. REBIF [Concomitant]
     Active Substance: INTERFERON BETA-1A
     Dosage: 3 TIMES WEEKLY
  4. VALIUM [Concomitant]
     Active Substance: DIAZEPAM
  5. H.P. ACTHAR [Suspect]
     Active Substance: CORTICOTROPIN
     Indication: MULTIPLE SCLEROSIS RELAPSE
     Dosage: 80 UNITS/ML DAILY FOR 5 DAYS A MONTH
     Route: 058
     Dates: start: 201406, end: 20150524
  6. AMPYRA [Concomitant]
     Active Substance: DALFAMPRIDINE
     Dosage: 10 MG BID
  7. VITAMIN D [Concomitant]
     Active Substance: CHOLECALCIFEROL
  8. OXYBUTYNIN [Concomitant]
     Active Substance: OXYBUTYNIN
  9. VITAMINS                           /90003601/ [Concomitant]
     Active Substance: VITAMINS
  10. BACLOFEN. [Concomitant]
     Active Substance: BACLOFEN
     Dosage: 20 MG TID

REACTIONS (8)
  - Condition aggravated [Not Recovered/Not Resolved]
  - Muscular weakness [Not Recovered/Not Resolved]
  - Drug ineffective [Unknown]
  - Hypoaesthesia [Not Recovered/Not Resolved]
  - Blood glucose increased [Not Recovered/Not Resolved]
  - Anaemia [Not Recovered/Not Resolved]
  - Multiple sclerosis [Not Recovered/Not Resolved]
  - General physical health deterioration [Not Recovered/Not Resolved]

NARRATIVE: CASE EVENT DATE: 2014
